FAERS Safety Report 11537419 (Version 2)
Quarter: 2015Q4

REPORT INFORMATION
  Report Type: Spontaneous
  Country: US (occurrence: US)
  Receive Date: 20150922
  Receipt Date: 20151125
  Transmission Date: 20160304
  Serious: No
  Sender: FDA-Public Use
  Company Number: US-PFIZER INC-2015310200

PATIENT
  Age: 75 Year
  Sex: Female
  Weight: 73 kg

DRUGS (1)
  1. DETROL LA [Suspect]
     Active Substance: TOLTERODINE TARTRATE
     Indication: INCONTINENCE
     Dosage: 4 MG, 1X/DAY
     Route: 048
     Dates: start: 20150908

REACTIONS (3)
  - Drug ineffective [Unknown]
  - Drug dispensing error [Unknown]
  - Expired product administered [Unknown]

NARRATIVE: CASE EVENT DATE: 20150908
